FAERS Safety Report 4312416-2 (Version None)
Quarter: 2004Q1

REPORT INFORMATION
  Report Type: 
  Country: None (occurrence: None)
  Receive Date: 20040305
  Receipt Date: 20040305
  Transmission Date: 20041129
  Serious: No
  Sender: FDA-Public Use
  Company Number: None

PATIENT
  Age: 26 Month
  Sex: Female

DRUGS (5)
  1. APROTININ [Suspect]
     Indication: CARDIAC OPERATION
     Dosage: TEXT DOSE
     Dates: start: 20030917
  2. SILDENAFIL [Concomitant]
  3. LASIX [Concomitant]
  4. TEGRETOL [Concomitant]
  5. ZANTAC [Concomitant]

REACTIONS (1)
  - RESPIRATORY DISORDER [None]
